FAERS Safety Report 20789830 (Version 1)
Quarter: 2022Q2

REPORT INFORMATION
  Report Type: Report from Study
  Country: CA (occurrence: CA)
  Receive Date: 20220505
  Receipt Date: 20220505
  Transmission Date: 20220720
  Serious: Yes (Other)
  Sender: FDA-Public Use
  Company Number: CA-KOREA IPSEN Pharma-2022-12406

PATIENT
  Age: 31 Year
  Sex: Male

DRUGS (3)
  1. LANREOTIDE ACETATE [Suspect]
     Active Substance: LANREOTIDE ACETATE
     Indication: Neuroendocrine tumour
     Route: 058
     Dates: start: 20220429
  2. INSULIN NOS [Concomitant]
     Active Substance: INSULIN NOS
  3. ENZYMES [Concomitant]

REACTIONS (1)
  - Neurogenic shock [Recovered/Resolved]

NARRATIVE: CASE EVENT DATE: 20220429
